FAERS Safety Report 5982055-6 (Version None)
Quarter: 2008Q4

REPORT INFORMATION
  Report Type: 
  Country: None (occurrence: None)
  Receive Date: 20081202
  Receipt Date: 20081124
  Transmission Date: 20090506
  Serious: Yes (Hospitalization)
  Sender: FDA-Public Use
  Company Number: 2008SP002972

PATIENT
  Sex: Female
  Weight: 45.6 kg

DRUGS (8)
  1. LUNESTA [Suspect]
     Indication: INSOMNIA
     Dosage: 1 MG; PRN; ORAL; 2 MG; PRN; ORAL; 3 MG; PRN; ORAL; 4 MG; ORAL
     Route: 048
     Dates: start: 20051028, end: 20050101
  2. LUNESTA [Suspect]
     Indication: INSOMNIA
     Dosage: 1 MG; PRN; ORAL; 2 MG; PRN; ORAL; 3 MG; PRN; ORAL; 4 MG; ORAL
     Route: 048
     Dates: start: 20050101, end: 20060101
  3. LUNESTA [Suspect]
     Indication: INSOMNIA
     Dosage: 1 MG; PRN; ORAL; 2 MG; PRN; ORAL; 3 MG; PRN; ORAL; 4 MG; ORAL
     Route: 048
     Dates: start: 20060101, end: 20081121
  4. PREMARIN [Concomitant]
  5. VITAMINS [Concomitant]
  6. FOSAMAX [Concomitant]
  7. LIPITOR [Concomitant]
  8. AMBIEN [Concomitant]

REACTIONS (4)
  - AMNESIA [None]
  - FALL [None]
  - PELVIC FRACTURE [None]
  - WEIGHT DECREASED [None]
